FAERS Safety Report 15882433 (Version 1)
Quarter: 2019Q1

REPORT INFORMATION
  Report Type: Spontaneous
  Country: US (occurrence: US)
  Receive Date: 20190129
  Receipt Date: 20190129
  Transmission Date: 20190417
  Serious: No
  Sender: FDA-Public Use
  Company Number: US-GLENMARK PHARMACEUTICALS-2018GMK038516

PATIENT

DRUGS (1)
  1. ATOMOXETINE HCL CAPSULES [Suspect]
     Active Substance: ATOMOXETINE HYDROCHLORIDE
     Indication: ATTENTION DEFICIT/HYPERACTIVITY DISORDER
     Dosage: 25 MG, OD
     Route: 048
     Dates: start: 201811, end: 201811

REACTIONS (4)
  - Somnolence [Unknown]
  - Manufacturing materials issue [Unknown]
  - Fatigue [Unknown]
  - Product substitution issue [Unknown]

NARRATIVE: CASE EVENT DATE: 201811
